FAERS Safety Report 12330615 (Version 2)
Quarter: 2016Q2

REPORT INFORMATION
  Report Type: Spontaneous
  Country: IT (occurrence: IT)
  Receive Date: 20160504
  Receipt Date: 20160512
  Transmission Date: 20160815
  Serious: Yes (Hospitalization, Other)
  Sender: FDA-Public Use
  Company Number: IT-BRISTOL-MYERS SQUIBB COMPANY-BMS-2016-032368

PATIENT
  Age: 60 Year
  Sex: Male
  Weight: 115 kg

DRUGS (3)
  1. LOSARTAN POTASSIUM. [Concomitant]
     Active Substance: LOSARTAN POTASSIUM
     Indication: HYPERTENSION
     Dosage: 100 MG, UNK
     Route: 048
  2. YERVOY [Suspect]
     Active Substance: IPILIMUMAB
     Indication: CHOROID MELANOMA
     Dosage: 345 MG, QCYCLE
     Route: 041
     Dates: start: 20160111, end: 20160311
  3. LOBIVON [Concomitant]
     Active Substance: NEBIVOLOL HYDROCHLORIDE
     Indication: HYPERTENSION
     Dosage: 5 MG, UNK
     Route: 048

REACTIONS (3)
  - Conjunctival oedema [Recovered/Resolved]
  - Conjunctivitis [Recovered/Resolved]
  - Connective tissue inflammation [Recovered/Resolved]

NARRATIVE: CASE EVENT DATE: 20160317
